FAERS Safety Report 8449926-2 (Version None)
Quarter: 2012Q2

REPORT INFORMATION
  Report Type: 
  Country: None (occurrence: None)
  Receive Date: 20120620
  Receipt Date: 20120613
  Transmission Date: 20120825
  Serious: Yes (Other)
  Sender: FDA-Public Use
  Company Number: PHHY2012CA050499

PATIENT
  Sex: Female

DRUGS (20)
  1. ZOLEDRONOC ACID [Suspect]
     Dosage: ONCE YEARLY
     Route: 042
     Dates: start: 20100604
  2. RABEPRAZOLE SODIUM [Concomitant]
     Dosage: UNK UKN, UNK
  3. ZOLEDRONOC ACID [Suspect]
     Dosage: ONCE YEARLY
     Route: 042
     Dates: start: 20090101
  4. ZOLEDRONOC ACID [Suspect]
     Dosage: ONCE YEARLY
     Route: 042
     Dates: start: 20120612
  5. VENTOLIN [Concomitant]
     Dosage: UNK UKN, UNK
  6. EZETIMIBE [Concomitant]
     Dosage: UNK UKN, UNK
  7. ZOLEDRONOC ACID [Suspect]
     Dosage: ONCE YEARLY
     Route: 042
     Dates: start: 20110608
  8. LOVAZA [Concomitant]
     Dosage: UNK UKN, UNK
  9. ATIVAN [Concomitant]
     Dosage: UNK UKN, UNK
  10. SPIRIVA [Concomitant]
     Dosage: UNK UKN, UNK
  11. CHONDROITIN W/GLUCOSAMINE [Concomitant]
     Dosage: UNK UKN, UNK
  12. ZOLEDRONOC ACID [Suspect]
     Indication: OSTEOPOROSIS
     Dosage: ONCE YEARLY
     Route: 042
     Dates: start: 20080516
  13. CALCIUM [Concomitant]
     Dosage: UNK UKN, UNK
     Dates: end: 20120201
  14. BEZALIP [Concomitant]
     Dosage: UNK UKN, UNK
  15. FLUTICASONE FUROATE [Concomitant]
  16. ASPIRIN [Concomitant]
     Dosage: UNK UKN, UNK
  17. COENZYME Q10 [Concomitant]
     Dosage: UNK UKN, UNK
  18. GLUMETZA [Concomitant]
     Dosage: UNK UKN, UNK
  19. MICARDIS [Concomitant]
     Dosage: UNK UKN, UNK
  20. VITAMIN D [Concomitant]
     Dosage: UNK UKN, UNK

REACTIONS (3)
  - CRYSTAL URINE PRESENT [None]
  - NEPHROLITHIASIS [None]
  - HYPERCALCAEMIA [None]
